FAERS Safety Report 4512009-8 (Version None)
Quarter: 2004Q4

REPORT INFORMATION
  Report Type: 
  Country: None (occurrence: None)
  Receive Date: 20041129
  Receipt Date: 20040713
  Transmission Date: 20050328
  Serious: No
  Sender: FDA-Public Use
  Company Number: US-BRISTOL-MYERS SQUIBB COMPANY-12639555

PATIENT
  Sex: Male

DRUGS (4)
  1. SUSTIVA [Suspect]
     Route: 048
     Dates: start: 20040712
  2. EPIVIR [Concomitant]
  3. VIREAD [Concomitant]
  4. CRIXIVAN [Concomitant]

REACTIONS (2)
  - ABNORMAL DREAMS [None]
  - EUPHORIC MOOD [None]
